FAERS Safety Report 14014803 (Version 1)
Quarter: 2017Q3

REPORT INFORMATION
  Report Type: Spontaneous
  Country: US (occurrence: None)
  Receive Date: 20170927
  Receipt Date: 20170927
  Transmission Date: 20171128
  Serious: Yes (Death, Hospitalization)
  Sender: FDA-Public Use
  Company Number: None

PATIENT
  Age: 12 Year
  Sex: Male
  Weight: 81.9 kg

DRUGS (5)
  1. CYCLOPHOSPHAMIDE. [Suspect]
     Active Substance: CYCLOPHOSPHAMIDE
     Dates: end: 20120720
  2. ONCASPAR [Suspect]
     Active Substance: PEGASPARGASE
     Dates: end: 20120730
  3. CLOLAR [Suspect]
     Active Substance: CLOFARABINE
     Dates: end: 20120720
  4. VINCRISTINE SULFATE. [Suspect]
     Active Substance: VINCRISTINE SULFATE
     Dates: end: 20120806
  5. ETOPOSIDE (VP-16) [Suspect]
     Active Substance: ETOPOSIDE
     Dates: end: 20120720

REACTIONS (9)
  - Pyrexia [None]
  - Respiratory failure [None]
  - Multiple organ dysfunction syndrome [None]
  - Bronchopulmonary aspergillosis [None]
  - Pneumonia [None]
  - Pancytopenia [None]
  - Neutropenia [None]
  - Aspergillus infection [None]
  - Tachypnoea [None]

NARRATIVE: CASE EVENT DATE: 20120803
